FAERS Safety Report 8854512 (Version 1)
Quarter: 2012Q4

REPORT INFORMATION
  Report Type: 
  Country: GB (occurrence: GB)
  Receive Date: 20121023
  Receipt Date: 20121023
  Transmission Date: 20130627
  Serious: Yes (Other)
  Sender: FDA-Public Use
  Company Number: GB-B.I. PHARMACEUTICALS,INC./RIDGEFIELD-2012-BP-26211YA

PATIENT
  Age: 74 Year
  Sex: Male

DRUGS (17)
  1. TAMSULOSINA [Suspect]
     Indication: PROSTATIC DISORDER
     Route: 048
     Dates: start: 20120411
  2. TAMSULOSINA [Suspect]
     Route: 048
  3. TAMSULOSINA [Suspect]
     Route: 048
  4. ADCAL D3 (CALCIUM CARBONATE, COLECALCIFEROL) [Concomitant]
     Indication: OSTEOPOROSIS
     Dates: start: 200609
  5. ALLOPURINOL (ALLOPURINOL) [Concomitant]
     Indication: GOUT
     Dates: start: 200908
  6. ASPIRIN (ACETYLSALICYLIC ACID) [Concomitant]
     Indication: CEREBROVASCULAR ACCIDENT
     Dates: start: 200406
  7. CLOPIDOGREL (CLOPIDOGREL) [Concomitant]
     Indication: CEREBROVASCULAR ACCIDENT
     Dates: start: 200803
  8. EXENATIDE (EXENATIDE) [Concomitant]
     Indication: DIABETES MELLITUS
     Dates: start: 201107
  9. FENTANYL (FENTANYL) [Concomitant]
     Indication: ANALGESIC THERAPY
     Dates: start: 201107
  10. MIRTAZAPINE (MIRTAZAPINE) [Concomitant]
     Indication: DEPRESSION
     Dates: start: 201008
  11. PARACETAMOL (PARACETAMOL) [Concomitant]
     Indication: ANALGESIC THERAPY
     Dates: start: 200401
  12. QUININE SULPHATE (QUININE SULFATE) [Concomitant]
     Indication: MUSCLE SPASMS
     Dates: start: 200609
  13. OMEPRAZOLE (OMEPRAZOLE) [Concomitant]
     Indication: GASTRIC PH DECREASED
     Dates: start: 200401
  14. OMEPRAZOLE (OMEPRAZOLE) [Concomitant]
     Indication: DYSPEPSIA
  15. SILDENAFIL (SILDENAFIL) [Concomitant]
     Indication: ERECTILE DYSFUNCTION
     Dates: start: 200112
  16. SIMVASTATINE (SIMVASTATIN) [Concomitant]
     Indication: BLOOD CHOLESTEROL ABNORMAL
     Dates: start: 200704
  17. TRAMADOL (TRAMADOL) [Concomitant]
     Indication: ANALGESIC THERAPY
     Dates: start: 200701

REACTIONS (2)
  - Drug ineffective [Unknown]
  - Urinary retention [Recovered/Resolved]
